FAERS Safety Report 9948998 (Version 1)
Quarter: 2014Q1

REPORT INFORMATION
  Report Type: Spontaneous
  Country: US (occurrence: None)
  Receive Date: 20140122
  Receipt Date: 20140122
  Transmission Date: 20141002
  Serious: Yes (Other)
  Sender: FDA-Public Use
  Company Number: AEGR000159

PATIENT
  Age: 56 Year
  Sex: Male
  Weight: 87.1 kg

DRUGS (8)
  1. JUXTAPID [Suspect]
     Indication: TYPE IIA HYPERLIPIDAEMIA
     Route: 048
     Dates: start: 20130607, end: 2013
  2. ASA (ASA) [Concomitant]
  3. VIT D (ERGOCALCIFEROL) [Concomitant]
  4. PLAVIX (CLOPIDOGREL BISULFATE) (CLOPIDOGREL BISULFATE) [Concomitant]
  5. CYMBALTA [Concomitant]
  6. PEPCID (FAMOTIDINE) [Concomitant]
  7. HYDROCODONE/APAP (HYDROCODONE BITARTRATE, PARACETAMOL) [Concomitant]
  8. LOPRESSOR (METOPROLOL TARTRATE) [Concomitant]

REACTIONS (1)
  - Tinea infection [None]
